FAERS Safety Report 7044181-2 (Version None)
Quarter: 2010Q4

REPORT INFORMATION
  Report Type: 
  Country: None (occurrence: None)
  Receive Date: 20101013
  Receipt Date: 20101004
  Transmission Date: 20110411
  Serious: Yes (Other)
  Sender: FDA-Public Use
  Company Number: FR-PFIZER INC-2010125446

PATIENT
  Age: 37 Year
  Sex: Female

DRUGS (2)
  1. RELPAX [Suspect]
     Indication: MIGRAINE
     Dosage: 40 MG, UNK
     Dates: start: 20090909
  2. AVLOCARDYL [Concomitant]
     Dosage: UNK

REACTIONS (3)
  - LIP OEDEMA [None]
  - OEDEMA [None]
  - PRURIGO [None]
